FAERS Safety Report 7311802-6 (Version None)
Quarter: 2011Q1

REPORT INFORMATION
  Report Type: 
  Country: None (occurrence: None)
  Receive Date: 20110224
  Receipt Date: 20110217
  Transmission Date: 20110831
  Serious: Yes (Other)
  Sender: FDA-Public Use
  Company Number: AT-PFIZER INC-2011035271

PATIENT
  Sex: Male

DRUGS (2)
  1. DALACIN [Suspect]
     Dosage: 900 MG, 3X/DAY
     Route: 048
     Dates: start: 20110101
  2. DALACIN [Suspect]
     Indication: ERYSIPELAS
     Dosage: UNK
     Route: 042
     Dates: start: 20110101

REACTIONS (1)
  - PROSTATIC SPECIFIC ANTIGEN INCREASED [None]
